FAERS Safety Report 22177717 (Version 1)
Quarter: 2023Q2

REPORT INFORMATION
  Report Type: Spontaneous
  Country: CH (occurrence: CH)
  Receive Date: 20230405
  Receipt Date: 20230405
  Transmission Date: 20230721
  Serious: Yes (Other)
  Sender: FDA-Public Use
  Company Number: CH-SM-2023-11551

PATIENT
  Age: 70 Year
  Sex: Male
  Weight: 74.4 kg

DRUGS (13)
  1. REVLIMID [Suspect]
     Active Substance: LENALIDOMIDE
     Indication: Product used for unknown indication
     Dosage: REVLIMID 15 MG ALLE 2 TAGE  08.02.2023-20.02.2023, PAUSE AB 21.02.2023, EINMALIGE, ERNEUTE UND LE...
     Route: 048
     Dates: start: 20230208, end: 20230220
  2. REVLIMID [Suspect]
     Active Substance: LENALIDOMIDE
     Dosage: REVLIMID 15 MG ALLE 2 TAGE  08.02.2023-20.02.2023, PAUSE AB 21.02.2023, EINMALIGE, ERNEUTE UND LE...
     Route: 048
     Dates: start: 20230228, end: 20230228
  3. DEXAMETHASONE [Concomitant]
     Active Substance: DEXAMETHASONE
     Dates: start: 20230214
  4. ASPIRIN [Concomitant]
     Active Substance: ASPIRIN
     Indication: Product used for unknown indication
  5. CARVEDILOL [Concomitant]
     Active Substance: CARVEDILOL
     Indication: Product used for unknown indication
     Dates: end: 20230220
  6. AMLODIPINE BESYLATE [Concomitant]
     Active Substance: AMLODIPINE BESYLATE
     Indication: Product used for unknown indication
     Dates: end: 20230220
  7. PRADIF T [Concomitant]
     Active Substance: TAMSULOSIN HYDROCHLORIDE
     Indication: Product used for unknown indication
  8. PANTOZOL [Concomitant]
     Active Substance: PANTOPRAZOLE SODIUM
     Indication: Product used for unknown indication
  9. NOPRIL [Concomitant]
     Indication: Product used for unknown indication
  10. VALTREX [Concomitant]
     Active Substance: VALACYCLOVIR HYDROCHLORIDE
     Indication: Product used for unknown indication
  11. ALLOPURINOL [Concomitant]
     Active Substance: ALLOPURINOL
     Indication: Product used for unknown indication
  12. BORTEZOMIB [Concomitant]
     Active Substance: BORTEZOMIB
     Indication: Product used for unknown indication
     Dates: start: 20230204
  13. Paspertin [Concomitant]
     Indication: Product used for unknown indication
     Dates: start: 20230204

REACTIONS (2)
  - Renal tubular acidosis [Recovering/Resolving]
  - Drug eruption [Recovering/Resolving]

NARRATIVE: CASE EVENT DATE: 20230221
